FAERS Safety Report 18806816 (Version 1)
Quarter: 2021Q1

REPORT INFORMATION
  Report Type: Spontaneous
  Country: US (occurrence: US)
  Receive Date: 20210128
  Receipt Date: 20210128
  Transmission Date: 20210419
  Serious: Yes (Other)
  Sender: FDA-Public Use
  Company Number: None

PATIENT
  Age: 67 Year
  Sex: Female

DRUGS (1)
  1. FENTANYL TRANSDERMAL SYSTEM [Suspect]
     Active Substance: FENTANYL
     Indication: SPONDYLITIC MYELOPATHY
     Dosage: ?          OTHER FREQUENCY:QOD;?
     Route: 062

REACTIONS (2)
  - Inadequate analgesia [None]
  - Drug ineffective [None]

NARRATIVE: CASE EVENT DATE: 20201209
